FAERS Safety Report 8694459 (Version 2)
Quarter: 2012Q4

REPORT INFORMATION
  Report Type: 
  Country: JP (occurrence: JP)
  Receive Date: 20120731
  Receipt Date: 20121008
  Transmission Date: 20130627
  Serious: Yes (Other)
  Sender: FDA-Public Use
  Company Number: JP-PFIZER INC-2011272154

PATIENT
  Sex: Female

DRUGS (12)
  1. JZOLOFT [Suspect]
     Indication: DEPRESSION
     Dosage: 25 mg daily
     Route: 048
  2. SOLANAX [Suspect]
     Dosage: 0.4 mg, 3x/day
     Route: 048
  3. SOLANAX [Suspect]
     Dosage: 0.8 mg, as needed
     Route: 048
  4. PROHEPARUM [Concomitant]
     Dosage: UNK
  5. URSO [Concomitant]
     Dosage: UNK
  6. BEZATOL [Concomitant]
     Dosage: UNK
  7. THYRADIN [Concomitant]
     Dosage: UNK
  8. ROHIPNOL [Concomitant]
     Dosage: UNK
  9. LAXOBERON [Concomitant]
     Dosage: UNK
  10. SENNARIDE [Concomitant]
     Dosage: UNK
  11. MAGMITT [Concomitant]
     Dosage: UNK
  12. ZYLORIC ^GLAXO WELLCOME^ [Concomitant]
     Dosage: UNK

REACTIONS (7)
  - Sudden hearing loss [Unknown]
  - Dizziness [Unknown]
  - Dysaesthesia [Unknown]
  - Eye disorder [Unknown]
  - Somnolence [Unknown]
  - Weight increased [Unknown]
  - Face oedema [Unknown]
